FAERS Safety Report 24404792 (Version 1)
Quarter: 2024Q4

REPORT INFORMATION
  Report Type: Spontaneous
  Country: US (occurrence: None)
  Receive Date: 20241004
  Receipt Date: 20241004
  Transmission Date: 20250115
  Serious: Yes (Life-Threatening, Hospitalization)
  Sender: Public
  Company Number: None

PATIENT
  Age: 33 Year
  Sex: Male
  Weight: 63 kg

DRUGS (1)
  1. ONABOTULINUMTOXINA [Suspect]
     Active Substance: ONABOTULINUMTOXINA
     Indication: Migraine
     Dosage: 155.00 IU INTERNATIONAL UNIT(S) ONCE INTRAMUSCULAR?
     Route: 030
     Dates: start: 20240509, end: 20240509

REACTIONS (4)
  - Dysphagia [None]
  - Muscular weakness [None]
  - Jaw disorder [None]
  - Muscular weakness [None]

NARRATIVE: CASE EVENT DATE: 20240514
